FAERS Safety Report 14545015 (Version 1)
Quarter: 2018Q1

REPORT INFORMATION
  Report Type: Spontaneous
  Country: US (occurrence: US)
  Receive Date: 20180216
  Receipt Date: 20180216
  Transmission Date: 20180509
  Serious: Yes (Other)
  Sender: FDA-Public Use
  Company Number: None

PATIENT
  Age: 25 Year
  Sex: Female
  Weight: 54 kg

DRUGS (3)
  1. FERROUS SULFATE. [Concomitant]
     Active Substance: FERROUS SULFATE
  2. DAILY MULTIVITAMIN [Concomitant]
     Active Substance: VITAMINS
  3. CREST PRO-HEALTH CLINICAL [Suspect]
     Active Substance: CETYLPYRIDINIUM CHLORIDE
     Indication: BREATH ODOUR
     Dosage: ?          QUANTITY:32 OUNCE(S);?
     Route: 048
     Dates: start: 20180130, end: 20180131

REACTIONS (1)
  - Swelling face [None]

NARRATIVE: CASE EVENT DATE: 20180131
